FAERS Safety Report 13226557 (Version 1)
Quarter: 2017Q1

REPORT INFORMATION
  Report Type: Spontaneous
  Country: US (occurrence: US)
  Receive Date: 20170213
  Receipt Date: 20170213
  Transmission Date: 20170428
  Serious: No
  Sender: FDA-Public Use
  Company Number: GXBR2016US002985

PATIENT
  Age: 74 Year
  Sex: Female

DRUGS (2)
  1. LANOXIN [Concomitant]
     Active Substance: DIGOXIN
     Indication: MITRAL VALVE PROLAPSE
     Dosage: UNK DF, UNK
     Route: 065
  2. CLOBETASOL PROPIONATE. [Suspect]
     Active Substance: CLOBETASOL PROPIONATE
     Indication: PSORIASIS
     Dosage: UNK DF, QD
     Route: 061
     Dates: start: 2016, end: 201606

REACTIONS (1)
  - Drug ineffective [Not Recovered/Not Resolved]
